FAERS Safety Report 6499835-3 (Version None)
Quarter: 2009Q4

REPORT INFORMATION
  Report Type: 
  Country: None (occurrence: None)
  Receive Date: 20091214
  Receipt Date: 20091201
  Transmission Date: 20100525
  Serious: Yes (Death, Hospitalization)
  Sender: FDA-Public Use
  Company Number: 077

PATIENT
  Age: 48 Year
  Sex: Male

DRUGS (1)
  1. FAZACLO 100 MG ODT AZUR PHARMA [Suspect]
     Dosage: 200 MG PO DAILY
     Route: 048
     Dates: start: 20060104, end: 20061008

REACTIONS (2)
  - ARTERIOSCLEROSIS CORONARY ARTERY [None]
  - FALL [None]
